FAERS Safety Report 7224334-0 (Version None)
Quarter: 2011Q1

REPORT INFORMATION
  Report Type: 
  Country: None (occurrence: None)
  Receive Date: 20110113
  Receipt Date: 20110110
  Transmission Date: 20110831
  Serious: Yes (Other)
  Sender: FDA-Public Use
  Company Number: IE-BRISTOL-MYERS SQUIBB COMPANY-15480064

PATIENT
  Age: 46 Year
  Sex: Female

DRUGS (2)
  1. ABILIFY [Suspect]
     Dosage: TAPERED TO 20MG/DAY
     Dates: start: 20100901
  2. OLANZAPINE [Suspect]
     Dosage: TAPERED DOWN TO 10MG/DAY

REACTIONS (2)
  - PSYCHOTIC DISORDER [None]
  - SLEEP DISORDER [None]
